FAERS Safety Report 12648679 (Version 1)
Quarter: 2016Q3

REPORT INFORMATION
  Report Type: Spontaneous
  Country: US (occurrence: US)
  Receive Date: 20160812
  Receipt Date: 20160812
  Transmission Date: 20161109
  Serious: Yes (Hospitalization)
  Sender: FDA-Public Use
  Company Number: US-JNJFOC-20160807019

PATIENT
  Sex: Female
  Weight: 112.04 kg

DRUGS (1)
  1. INVOKANA [Suspect]
     Active Substance: CANAGLIFLOZIN
     Indication: PRODUCT USED FOR UNKNOWN INDICATION
     Dosage: STARTED CANAGLIFLOZIN IN 2014 OR 2015
     Route: 048

REACTIONS (3)
  - Mental impairment [Not Recovered/Not Resolved]
  - Cerebrovascular accident [Unknown]
  - Tremor [Not Recovered/Not Resolved]
